FAERS Safety Report 11106894 (Version 1)
Quarter: 2015Q2

REPORT INFORMATION
  Report Type: Spontaneous
  Country: FR (occurrence: FR)
  Receive Date: 20150512
  Receipt Date: 20150512
  Transmission Date: 20150821
  Serious: Yes (Hospitalization, Other)
  Sender: FDA-Public Use
  Company Number: FR-PFIZER INC-2015154584

PATIENT
  Age: 30 Year
  Sex: Female

DRUGS (4)
  1. TOPALGIC LP [Interacting]
     Active Substance: TRAMADOL
     Dosage: 150 MG, UP TO 12 TABLETS PER DAY
     Route: 048
     Dates: start: 2013, end: 20150320
  2. XANAX [Concomitant]
     Active Substance: ALPRAZOLAM
     Dosage: UNK
  3. EFFEXOR [Suspect]
     Active Substance: VENLAFAXINE HYDROCHLORIDE
     Dosage: UNK
     Route: 048
  4. TOPALGIC LP [Interacting]
     Active Substance: TRAMADOL
     Dosage: 150 MG 2 TABLETS DAILY
     Route: 048
     Dates: start: 20150321

REACTIONS (4)
  - Overdose [Unknown]
  - Foot fracture [Unknown]
  - Drug interaction [Recovered/Resolved]
  - Seizure [Recovered/Resolved]

NARRATIVE: CASE EVENT DATE: 20150321
